FAERS Safety Report 6395754-1 (Version None)
Quarter: 2009Q4

REPORT INFORMATION
  Report Type: 
  Country: None (occurrence: None)
  Receive Date: 20091009
  Receipt Date: 20091007
  Transmission Date: 20100525
  Serious: Yes (Hospitalization)
  Sender: FDA-Public Use
  Company Number: US-B.I. PHARMACEUTICALS,INC./RIDGEFIELD-2009-BP-11046BP

PATIENT
  Age: 72 Year
  Sex: Female

DRUGS (7)
  1. DULCOLAX [Suspect]
     Indication: CONSTIPATION
     Dosage: 10 MG
     Route: 054
     Dates: start: 20090917
  2. METFORMIN HCL [Concomitant]
     Indication: DIABETES MELLITUS
  3. QUINAPRIL [Concomitant]
     Indication: HYPERTENSION
  4. NIFEDIPINE [Concomitant]
     Indication: HYPERTENSION
  5. OMEPRAZOLE [Concomitant]
     Indication: FLATULENCE
  6. SIMVASTATIN [Concomitant]
  7. MULTI-VITAMIN [Concomitant]

REACTIONS (1)
  - CONSTIPATION [None]
